FAERS Safety Report 11075212 (Version 2)
Quarter: 2015Q2

REPORT INFORMATION
  Report Type: Spontaneous
  Country: JP (occurrence: JP)
  Receive Date: 20150429
  Receipt Date: 20150511
  Transmission Date: 20150821
  Serious: Yes (Life-Threatening, Other)
  Sender: FDA-Public Use
  Company Number: JP-UCBSA-2015009311

PATIENT
  Age: 47 Year
  Sex: Female
  Weight: 50 kg

DRUGS (21)
  1. KEPPRA [Suspect]
     Active Substance: LEVETIRACETAM
     Indication: EPILEPSY
     Dosage: 500 MG, 2X/DAY (BID), 2 TABLETS PER DAY
     Route: 048
     Dates: start: 20150311, end: 20150316
  2. PRIMPERAN [Concomitant]
     Active Substance: METOCLOPRAMIDE HYDROCHLORIDE
     Indication: PRODUCT USED FOR UNKNOWN INDICATION
     Dosage: UNK
     Route: 048
     Dates: start: 20150219, end: 20150314
  3. SALINE [Concomitant]
     Active Substance: SODIUM CHLORIDE
     Indication: URTICARIA
     Dosage: 100 ML
     Dates: start: 20150313
  4. BLOPRESS [Concomitant]
     Active Substance: CANDESARTAN CILEXETIL
     Indication: PRODUCT USED FOR UNKNOWN INDICATION
     Dosage: UNK
     Route: 048
     Dates: start: 20150226
  5. PRIMPERAN [Concomitant]
     Active Substance: METOCLOPRAMIDE HYDROCHLORIDE
     Indication: OCULOMUCOCUTANEOUS SYNDROME
     Dosage: 1A
     Route: 030
     Dates: start: 20150316
  6. HYDROCORTISONE SODIUM SUCCINATE [Concomitant]
     Active Substance: HYDROCORTISONE SODIUM SUCCINATE
     Indication: LIP OEDEMA
     Dosage: 100 MG 3 V
     Dates: start: 20150316
  7. HYDROCORTISONE SODIUM SUCCINATE [Concomitant]
     Active Substance: HYDROCORTISONE SODIUM SUCCINATE
     Indication: THROAT IRRITATION
  8. GLYCINE. [Concomitant]
     Active Substance: GLYCINE
     Indication: PRODUCT USED FOR UNKNOWN INDICATION
     Dosage: 40 MG/DAY
     Route: 042
     Dates: start: 20150313
  9. TAKEPRON [Concomitant]
     Active Substance: LANSOPRAZOLE
     Indication: PRODUCT USED FOR UNKNOWN INDICATION
     Dosage: UNK
     Route: 048
     Dates: start: 20150119
  10. HYDROCORTISONE SODIUM SUCCINATE [Concomitant]
     Active Substance: HYDROCORTISONE SODIUM SUCCINATE
     Indication: OCULOMUCOCUTANEOUS SYNDROME
     Dosage: 100 MG 3 V
     Dates: start: 20150314, end: 20150315
  11. ALESION [Concomitant]
     Active Substance: EPINASTINE HYDROCHLORIDE
     Indication: URTICARIA
     Dosage: 20 MG
     Route: 048
     Dates: start: 20150307, end: 20150308
  12. SALINE [Concomitant]
     Active Substance: SODIUM CHLORIDE
     Indication: LIP OEDEMA
  13. CELESTAMINE [Concomitant]
     Active Substance: BETAMETHASONE\DEXCHLORPHENIRAMINE MALEATE
     Indication: PRODUCT USED FOR UNKNOWN INDICATION
     Dosage: UNK
     Route: 048
     Dates: start: 20150313
  14. SALINE [Concomitant]
     Active Substance: SODIUM CHLORIDE
     Indication: THROAT IRRITATION
  15. GLYCINE. [Concomitant]
     Active Substance: GLYCINE
     Dosage: 20 ML
     Route: 042
     Dates: start: 20150316
  16. PREDNISOLONE. [Concomitant]
     Active Substance: PREDNISOLONE
     Indication: PRODUCT USED FOR UNKNOWN INDICATION
     Dosage: 5 MG, 2X/DAY (BID)
     Route: 048
     Dates: start: 20150315
  17. EXCEGRAN [Suspect]
     Active Substance: ZONISAMIDE
     Indication: PRODUCT USED FOR UNKNOWN INDICATION
     Dosage: 100 MG, 2X/DAY (BID), 2 TABS PER DAY
     Route: 048
     Dates: start: 20150119, end: 20150311
  18. HYDROCORTISONE SODIUM SUCCINATE [Concomitant]
     Active Substance: HYDROCORTISONE SODIUM SUCCINATE
     Indication: URTICARIA
     Dosage: 100 MG 1V
     Dates: start: 20150313
  19. SALINE [Concomitant]
     Active Substance: SODIUM CHLORIDE
     Indication: OCULOMUCOCUTANEOUS SYNDROME
     Dosage: 10 ML WITH DEXAMETHASONE SODIUM PHOSPHATE AND 100 ML INFUSION WITH HYDOCORTISONE SODIUM SUCCINATE
     Dates: start: 20150316
  20. BETAMETHASONE [Concomitant]
     Active Substance: BETAMETHASONE
     Indication: PRODUCT USED FOR UNKNOWN INDICATION
     Dosage: UNK
     Dates: start: 20150313
  21. XYZAL [Concomitant]
     Active Substance: LEVOCETIRIZINE DIHYDROCHLORIDE
     Indication: RASH
     Dosage: 5 MG
     Route: 048
     Dates: start: 20150309, end: 20150313

REACTIONS (1)
  - Oculomucocutaneous syndrome [Recovering/Resolving]

NARRATIVE: CASE EVENT DATE: 20150316
